FAERS Safety Report 6646477-2 (Version None)
Quarter: 2010Q1

REPORT INFORMATION
  Report Type: 
  Country: None (occurrence: None)
  Receive Date: 20100323
  Receipt Date: 20100311
  Transmission Date: 20100710
  Serious: Yes (Death)
  Sender: FDA-Public Use
  Company Number: GB-WATSON-2010-03233

PATIENT

DRUGS (4)
  1. RISPERIDONE [Suspect]
     Indication: PSYCHOTIC DISORDER
     Dosage: 3 MG, BID
     Route: 048
     Dates: start: 20080417
  2. VENLAFAXINE [Suspect]
     Indication: PSYCHOTIC DISORDER
     Dosage: 75 MG, DAILY
     Route: 048
     Dates: start: 20090108
  3. PROCYCLIDINE HYDROCHLORIDE [Concomitant]
     Indication: DRUG USE FOR UNKNOWN INDICATION
     Dosage: UNK
  4. PROPRANOLOL [Concomitant]
     Indication: DRUG USE FOR UNKNOWN INDICATION
     Dosage: UNK

REACTIONS (2)
  - CARDIOTOXICITY [None]
  - MYOCARDIAL ISCHAEMIA [None]
